FAERS Safety Report 5414807-5 (Version None)
Quarter: 2007Q3

REPORT INFORMATION
  Report Type: 
  Country: None (occurrence: None)
  Receive Date: 20070815
  Receipt Date: 20070806
  Transmission Date: 20080115
  Serious: Yes (Hospitalization)
  Sender: FDA-Public Use
  Company Number: CHWYE551330APR07

PATIENT
  Age: 42 Year
  Sex: Female
  Weight: 56 kg

DRUGS (8)
  1. EFFEXOR [Suspect]
     Indication: DEPRESSION
     Route: 048
     Dates: start: 20060301, end: 20070101
  2. EFFEXOR [Suspect]
     Dosage: UNKNOWN
     Dates: start: 20070701
  3. DALMADORM [Concomitant]
     Dates: start: 20061201
  4. RISPERDAL [Concomitant]
     Dates: start: 20061201
  5. LORAZEPAM [Concomitant]
     Dates: start: 20061201
  6. DIHYDERGOT PLUS [Concomitant]
     Dosage: UNKNOWN
     Route: 048
     Dates: start: 20061101
  7. ENTUMIN [Concomitant]
     Indication: AGITATION
     Dosage: 40 MG PER DAY
     Route: 048
     Dates: start: 20061101, end: 20061201
  8. ENTUMIN [Concomitant]
     Dosage: 10 MG PER DAY
     Dates: start: 20061201

REACTIONS (9)
  - ABDOMINAL PAIN UPPER [None]
  - ALANINE AMINOTRANSFERASE INCREASED [None]
  - ANXIETY [None]
  - ASPARTATE AMINOTRANSFERASE INCREASED [None]
  - BLOOD ALKALINE PHOSPHATASE INCREASED [None]
  - C-REACTIVE PROTEIN INCREASED [None]
  - GAMMA-GLUTAMYLTRANSFERASE INCREASED [None]
  - LIVER DISORDER [None]
  - NAUSEA [None]
